FAERS Safety Report 13235386 (Version 1)
Quarter: 2017Q1

REPORT INFORMATION
  Report Type: Report from Study
  Country: DE (occurrence: DE)
  Receive Date: 20170215
  Receipt Date: 20170215
  Transmission Date: 20170428
  Serious: Yes (Hospitalization)
  Sender: FDA-Public Use
  Company Number: DE-TEVA-737872GER

PATIENT
  Sex: Female

DRUGS (21)
  1. PEGFILGRASTIM [Suspect]
     Active Substance: PEGFILGRASTIM
     Indication: B-CELL LYMPHOMA
     Dosage: 6 MILLIGRAM DAILY;
     Route: 058
     Dates: start: 20160514, end: 20160514
  2. TORASEMID [Concomitant]
     Active Substance: TORSEMIDE
     Indication: DYSPNOEA
     Dosage: 5 MILLIGRAM DAILY;
     Route: 048
  3. METOPROLOL. [Concomitant]
     Active Substance: METOPROLOL
     Dosage: 1-0-1
  4. DOXORUBICIN [Suspect]
     Active Substance: DOXORUBICIN
     Indication: B-CELL LYMPHOMA
     Dosage: ONCE PER DAY, LAST DOSE 26-JUL-2016
     Route: 042
     Dates: start: 20160511
  5. RITUXIMAB [Suspect]
     Active Substance: RITUXIMAB
     Dosage: AS MAINENANCE AND MOST RECENT DOSE ON 04-OCT-2016 (375 MG/M2, 1 IN 1)
     Route: 042
     Dates: start: 20161004
  6. OXETACAINE [Concomitant]
     Active Substance: OXETHAZAINE
  7. RITUXIMAB [Suspect]
     Active Substance: RITUXIMAB
     Indication: B-CELL LYMPHOMA
     Dosage: LAST DOSE PRIOR EVENT: 26-JUL-2016 (375 MG/M2 FOR 8 DAYS)
     Route: 042
     Dates: start: 20160506
  8. RAMIPRIL. [Concomitant]
     Active Substance: RAMIPRIL
     Dosage: 2.5 MILLIGRAM DAILY;
     Route: 048
  9. HYDROCHLOROTHIAZIDE. [Concomitant]
     Active Substance: HYDROCHLOROTHIAZIDE
     Indication: DYSPNOEA
  10. PHENPROCOUMON [Concomitant]
     Active Substance: PHENPROCOUMON
     Dosage: 1 DOSAGE FORMS DAILY;
     Route: 048
  11. FUROSEMIDE. [Concomitant]
     Active Substance: FUROSEMIDE
     Dosage: 40 MILLIGRAM DAILY;
  12. POTASSIUM CHLORIDE. [Concomitant]
     Active Substance: POTASSIUM CHLORIDE
     Dosage: 1 GRAM DAILY;
  13. PREDNISONE. [Suspect]
     Active Substance: PREDNISONE
     Indication: B-CELL LYMPHOMA
     Dosage: 1 TIMES DAY FOR 5 DAY, LAST DOSE 26-JUL-2016
     Route: 048
     Dates: start: 20160511, end: 20160731
  14. CYCLOPHOSPHAMIDE. [Suspect]
     Active Substance: CYCLOPHOSPHAMIDE
     Indication: B-CELL LYMPHOMA
     Dosage: 1 TIMES DAY FOR 1 DAY
     Route: 042
     Dates: start: 20160511
  15. VINCRISTINE [Suspect]
     Active Substance: VINCRISTINE
     Indication: B-CELL LYMPHOMA
     Dosage: 1 TIMES DAY FOR 1 DAY, LAST DOSE 26-JUL-2016
     Route: 042
     Dates: start: 20160511
  16. HYDROCHLOROTHIAZIDE. [Concomitant]
     Active Substance: HYDROCHLOROTHIAZIDE
     Indication: HYPERTENSION
     Dosage: 12.5 MILLIGRAM DAILY;
     Route: 048
  17. PANTOPRAZOL NATRIUM [Concomitant]
     Indication: PROPHYLAXIS
     Route: 048
  18. CANDESARTAN [Concomitant]
     Active Substance: CANDESARTAN
     Indication: HYPERTENSION
     Dosage: 16 MILLIGRAM DAILY;
     Route: 048
  19. DABIGATRAN ETEXILATE [Concomitant]
     Active Substance: DABIGATRAN ETEXILATE
     Dosage: 150 MILLIGRAM DAILY;
  20. METOPROLOL SUCCINATE. [Concomitant]
     Active Substance: METOPROLOL SUCCINATE
     Indication: HYPERTENSION
     Dosage: 95 MILLIGRAM DAILY;
     Route: 048
  21. DOMPERIDON [Concomitant]
     Active Substance: DOMPERIDONE
     Dosage: 1 ML DAILY;

REACTIONS (1)
  - Atrial fibrillation [Recovered/Resolved]

NARRATIVE: CASE EVENT DATE: 20160519
